FAERS Safety Report 26149083 (Version 2)
Quarter: 2025Q4

REPORT INFORMATION
  Report Type: Spontaneous
  Country: QA (occurrence: QA)
  Receive Date: 20251212
  Receipt Date: 20251216
  Transmission Date: 20260117
  Serious: Yes (Life-Threatening, Hospitalization)
  Sender: MACLEODS
  Company Number: QA-MACLEODS PHARMA-MAC2025056936

PATIENT

DRUGS (6)
  1. OLANZAPINE [Suspect]
     Active Substance: OLANZAPINE
     Indication: Product used for unknown indication
     Dosage: AT BEDTIME
     Route: 065
  2. OLANZAPINE [Suspect]
     Active Substance: OLANZAPINE
     Dosage: REDUCED ONE MONTH BEFORE THE PRESENTATION
     Route: 065
  3. MIRTAZAPINE [Concomitant]
     Active Substance: MIRTAZAPINE
     Indication: Product used for unknown indication
     Dosage: AT BEDTIME
     Route: 065
  4. MEMANTINE [Concomitant]
     Active Substance: MEMANTINE
     Indication: Product used for unknown indication
     Route: 065
  5. LORAZEPAM [Concomitant]
     Active Substance: LORAZEPAM
     Indication: Product used for unknown indication
     Route: 065
  6. LORAZEPAM [Concomitant]
     Active Substance: LORAZEPAM
     Route: 065

REACTIONS (5)
  - Metabolic acidosis [Recovering/Resolving]
  - Diabetic ketoacidosis [Recovering/Resolving]
  - Rhabdomyolysis [Recovering/Resolving]
  - Acute kidney injury [Recovering/Resolving]
  - Neuroleptic malignant syndrome [Recovering/Resolving]
